FAERS Safety Report 23764331 (Version 1)
Quarter: 2024Q2

REPORT INFORMATION
  Report Type: Spontaneous
  Country: CA (occurrence: CA)
  Receive Date: 20240420
  Receipt Date: 20240420
  Transmission Date: 20240716
  Serious: Yes (Other)
  Sender: FDA-Public Use
  Company Number: CA-TEVA-VS-3184607

PATIENT
  Age: 48 Year
  Sex: Male

DRUGS (24)
  1. FAMCICLOVIR [Suspect]
     Active Substance: FAMCICLOVIR
     Indication: Product used for unknown indication
     Route: 065
  2. BISACODYL [Suspect]
     Active Substance: BISACODYL
     Dosage: DOSE FORM: NOT SPECIFIED
     Route: 065
  3. CHOLECALCIFEROL [Concomitant]
     Active Substance: CHOLECALCIFEROL
     Dosage: DOSE FORM: NOT SPECIFIED
     Route: 065
  4. CRESEMBA [Concomitant]
     Active Substance: ISAVUCONAZONIUM SULFATE
     Dosage: DOSE FORM: NOT SPECIFIED
     Route: 065
  5. FUROSEMIDE [Concomitant]
     Active Substance: FUROSEMIDE
     Dosage: DOSE FORM: NOT SPECIFIED
     Route: 065
  6. CIPROFLOXACIN HYDROCHLORIDE\DEXAMETHASONE [Concomitant]
     Active Substance: CIPROFLOXACIN HYDROCHLORIDE\DEXAMETHASONE
     Route: 065
  7. DIPHENHYDRAMINE [Suspect]
     Active Substance: DIPHENHYDRAMINE
     Dosage: DOSE FORM: NOT SPECIFIED
     Route: 065
  8. HYDROMORPHONE [Suspect]
     Active Substance: HYDROMORPHONE
     Dosage: DOSE FORM: NOT SPECIFIED
     Route: 065
  9. ALLOPURINOL [Suspect]
     Active Substance: ALLOPURINOL
     Route: 065
  10. AMOXICILLIN\CLAVULANATE POTASSIUM [Suspect]
     Active Substance: AMOXICILLIN\CLAVULANATE POTASSIUM
     Dosage: DOSE FORM: NOT SPECIFIED
     Route: 065
  11. LACTULOSE [Suspect]
     Active Substance: LACTULOSE
     Route: 065
  12. HYDROXYUREA [Suspect]
     Active Substance: HYDROXYUREA
     Dosage: DOSE FORM: NOT SPECIFIED
     Route: 065
  13. LIDOCAINE [Suspect]
     Active Substance: LIDOCAINE
     Dosage: DOSE FORM: LIDOCAINE
     Route: 065
  14. LORAZEPAM [Suspect]
     Active Substance: LORAZEPAM
     Dosage: DOSE FORM: NOT SPECIFIED
     Route: 065
  15. MAGNESIUM GLUCEPTATE [Suspect]
     Active Substance: MAGNESIUM GLUCEPTATE
     Dosage: DOSE FORM: NOT SPECIFIED
     Route: 065
  16. MINERAL OIL [Suspect]
     Active Substance: MINERAL OIL
     Dosage: DOSE FORM: LIQUID ORAL
     Route: 065
  17. NYSTATIN [Suspect]
     Active Substance: NYSTATIN
     Dosage: DOSE FORM: NOT SPECIFIED
     Route: 065
  18. PENTAMIDINE ISETHIONATE [Suspect]
     Active Substance: PENTAMIDINE ISETHIONATE
     Dosage: DOSE FORM: POWDER FOR SOLUTION INTRAMUSCULAR
     Route: 065
  19. POLYETHYLENE GLYCOL [Suspect]
     Active Substance: POLYETHYLENE GLYCOL
     Dosage: DOSE FORM: NOT SPECIFIED
     Route: 065
  20. POTASSIUM [Suspect]
     Active Substance: POTASSIUM
     Dosage: DOSE FORM: NOT SPECIFIED
     Route: 065
  21. RAMIPRIL [Suspect]
     Active Substance: RAMIPRIL
     Route: 065
  22. METOPROLOL [Suspect]
     Active Substance: METOPROLOL
     Dosage: DOSE FORM: METOPROLOL
     Route: 065
  23. PANTOPRAZOLE SODIUM ANHYDROUS [Suspect]
     Active Substance: PANTOPRAZOLE SODIUM ANHYDROUS
     Dosage: DOSE FORM: NOT SPECIFIED
     Route: 065
  24. SENNOSIDES [Suspect]
     Active Substance: SENNOSIDES
     Dosage: DOSE FORM: NOT SPECIFIED
     Route: 065

REACTIONS (1)
  - Febrile neutropenia [Unknown]
